FAERS Safety Report 5060122-1 (Version None)
Quarter: 2006Q3

REPORT INFORMATION
  Report Type: 
  Country: None (occurrence: None)
  Receive Date: 20060719
  Receipt Date: 20060710
  Transmission Date: 20061208
  Serious: Yes (Hospitalization)
  Sender: FDA-Public Use
  Company Number: THQ2006A00096

PATIENT
  Age: 66 Year
  Sex: 0

DRUGS (5)
  1. LEUPROLIDE ACETATE [Suspect]
     Indication: PROSTATE CANCER
     Dosage: 22.5 MG (22.5 MG, 1 IN 3 M)
     Dates: start: 20051116, end: 20060216
  2. ZOLEDRONIC ACID [Concomitant]
  3. OMEPRAZOLE [Concomitant]
  4. CANDESARTAAN CILEXETIL [Concomitant]
  5. TRAMADOL [Concomitant]

REACTIONS (6)
  - ABASIA [None]
  - ARTHROPATHY [None]
  - ASPIRATION JOINT [None]
  - GOUT [None]
  - PAIN [None]
  - PURULENCE [None]
